FAERS Safety Report 7591947-6 (Version None)
Quarter: 2011Q3

REPORT INFORMATION
  Report Type: 
  Country: None (occurrence: None)
  Receive Date: 20110706
  Receipt Date: 20110628
  Transmission Date: 20111222
  Serious: Yes (Hospitalization)
  Sender: FDA-Public Use
  Company Number: MX-SP-2011-03900

PATIENT
  Age: 66 Year
  Sex: Male

DRUGS (1)
  1. THERACYS [Suspect]
     Indication: BLADDER CANCER
     Route: 043
     Dates: start: 20110601, end: 20110601

REACTIONS (8)
  - HEPATORENAL FAILURE [None]
  - LEUKOPENIA [None]
  - PYREXIA [None]
  - SEPSIS [None]
  - THROMBOCYTOPENIA [None]
  - ANURIA [None]
  - HEPATOMEGALY [None]
  - JAUNDICE [None]
